FAERS Safety Report 8968821 (Version 1)
Quarter: 2012Q4

REPORT INFORMATION
  Report Type: Report from Study
  Country: US (occurrence: US)
  Receive Date: 20121217
  Receipt Date: 20121217
  Transmission Date: 20130627
  Serious: Yes (Other)
  Sender: FDA-Public Use
  Company Number: US-ROCHE-1169882

PATIENT
  Sex: Male

DRUGS (1)
  1. CAPECITABINE [Suspect]
     Indication: NEOPLASM MALIGNANT
     Route: 048
     Dates: start: 20101025

REACTIONS (4)
  - Diarrhoea [Unknown]
  - Nausea [Unknown]
  - Colon operation [Unknown]
  - Liver operation [Unknown]
